FAERS Safety Report 8972631 (Version 1)
Quarter: 2012Q4

REPORT INFORMATION
  Report Type: 
  Country: KR (occurrence: KR)
  Receive Date: 20121218
  Receipt Date: 20121218
  Transmission Date: 20130627
  Serious: Yes (Other)
  Sender: FDA-Public Use
  Company Number: KR-ELI_LILLY_AND_COMPANY-KR201212005226

PATIENT

DRUGS (1)
  1. ZYPREXA [Suspect]
     Dosage: 1 DF, unknown
     Route: 030

REACTIONS (1)
  - Electrocardiogram QT prolonged [Unknown]
